FAERS Safety Report 9516648 (Version 1)
Quarter: 2013Q3

REPORT INFORMATION
  Report Type: Spontaneous
  Country: TR (occurrence: TR)
  Receive Date: 20130911
  Receipt Date: 20130911
  Transmission Date: 20140515
  Serious: Yes (Hospitalization)
  Sender: FDA-Public Use
  Company Number: TR-GLAXOSMITHKLINE-B0921867A

PATIENT
  Age: 35 Year
  Sex: Female

DRUGS (2)
  1. METFORMIN [Suspect]
     Indication: SUICIDE ATTEMPT
     Dosage: 48G SINGLE DOSE
     Route: 065
  2. ROSIGLITAZONE [Suspect]
     Indication: SUICIDE ATTEMPT
     Dosage: 108MG SINGLE DOSE
     Route: 065

REACTIONS (9)
  - Suicide attempt [Recovered/Resolved]
  - Toxicity to various agents [Recovered/Resolved]
  - Loss of consciousness [Unknown]
  - Oliguria [Unknown]
  - Nausea [Unknown]
  - Vomiting [Unknown]
  - Hypotension [Unknown]
  - Hypoglycaemia [Unknown]
  - Metabolic acidosis [Unknown]
